FAERS Safety Report 7653956-8 (Version None)
Quarter: 2011Q3

REPORT INFORMATION
  Report Type: 
  Country: None (occurrence: None)
  Receive Date: 20110803
  Receipt Date: 20110801
  Transmission Date: 20111222
  Serious: Yes (Other)
  Sender: FDA-Public Use
  Company Number: JP-PFIZER INC-2011126506

PATIENT
  Age: 37 Year
  Sex: Female

DRUGS (13)
  1. KETOPROFEN [Concomitant]
     Indication: MUSCULOSKELETAL STIFFNESS
     Route: 003
  2. ZOLOFT [Suspect]
     Dosage: 50 MG PER DAY
     Route: 048
     Dates: start: 20101015, end: 20110307
  3. ZOLOFT [Suspect]
     Dosage: 25 MG PER DAY
     Route: 048
     Dates: start: 20110624, end: 20110703
  4. MEILAX [Concomitant]
     Indication: ANXIETY
     Dosage: 1 DF, 1X/DAY
     Route: 048
     Dates: start: 20101015
  5. STAYBAN [Concomitant]
     Indication: MUSCULOSKELETAL STIFFNESS
     Dosage: UNK
     Route: 003
  6. ZOLOFT [Suspect]
     Dosage: 75 MG PER DAY
     Route: 048
     Dates: start: 20110308, end: 20110608
  7. ZOLOFT [Suspect]
     Dosage: 50 MG PER DAY
     Route: 048
     Dates: start: 20110609, end: 20110623
  8. RIZE [Concomitant]
     Indication: TENSION
     Dosage: 5 MG, 2X/DAY
     Route: 048
     Dates: start: 20100924, end: 20101014
  9. KETOPROFEN [Concomitant]
     Indication: BACK PAIN
  10. RIZE [Concomitant]
     Indication: ANXIETY
     Dosage: 5 MG, 3X/DAY
     Route: 048
     Dates: start: 20090204, end: 20100923
  11. ZOLOFT [Suspect]
     Indication: DEPRESSION
     Dosage: 25 MG PER DAY
     Route: 048
     Dates: start: 20100909, end: 20101014
  12. STAYBAN [Concomitant]
     Indication: BACK PAIN
  13. MEILAX [Concomitant]
     Indication: TENSION

REACTIONS (3)
  - LYMPHOCYTE MORPHOLOGY ABNORMAL [None]
  - MYELOPROLIFERATIVE DISORDER [None]
  - WHITE BLOOD CELL COUNT INCREASED [None]
